FAERS Safety Report 7903163-6 (Version None)
Quarter: 2011Q4

REPORT INFORMATION
  Report Type: 
  Country: None (occurrence: None)
  Receive Date: 20111108
  Receipt Date: 20111108
  Transmission Date: 20120403
  Serious: Yes (Hospitalization)
  Sender: FDA-Public Use
  Company Number: None

PATIENT
  Age: 70 Year
  Sex: Male
  Weight: 69 kg

DRUGS (1)
  1. TRADJENTA [Suspect]
     Indication: TYPE 2 DIABETES MELLITUS
     Dosage: 5 MG, DAILY, ORAL
     Route: 048
     Dates: start: 20111012, end: 20111020

REACTIONS (6)
  - PYREXIA [None]
  - RASH [None]
  - DISCOMFORT [None]
  - MYALGIA [None]
  - MUSCULOSKELETAL STIFFNESS [None]
  - ARTHRALGIA [None]
